FAERS Safety Report 20922967 (Version 1)
Quarter: 2022Q2

REPORT INFORMATION
  Report Type: Spontaneous
  Country: IT (occurrence: IT)
  Receive Date: 20220607
  Receipt Date: 20220607
  Transmission Date: 20220720
  Serious: Yes (Other)
  Sender: FDA-Public Use
  Company Number: None

PATIENT
  Age: 86 Year
  Sex: Female

DRUGS (10)
  1. BROMAZEPAM [Suspect]
     Active Substance: BROMAZEPAM
     Dosage: 552 MG ?DAILY DOSE: 1.5 MILLIGRAM
     Route: 048
     Dates: start: 20210101
  2. CLONAZEPAM [Suspect]
     Active Substance: CLONAZEPAM
     Dosage: 184 MG ?DAILY DOSE: 0.5 MILLIGRAM
     Route: 048
     Dates: start: 20210101
  3. COUMADIN [Suspect]
     Active Substance: WARFARIN SODIUM
     Dosage: 1840 MG ?DAILY DOSE: 5 MILLIGRAM
     Route: 048
     Dates: start: 20210101
  4. HALCION [Suspect]
     Active Substance: TRIAZOLAM
     Dosage: 92000 UG ?DAILY DOSE: 250 MICROGRAM
     Route: 048
     Dates: start: 20210101
  5. TRAZODONE HYDROCHLORIDE [Suspect]
     Active Substance: TRAZODONE HYDROCHLORIDE
     Dosage: 36800 MG ?DAILY DOSE: 100 MILLIGRAM
     Route: 048
     Dates: start: 20210101
  6. BISOPROLOL FUMARATE [Concomitant]
     Active Substance: BISOPROLOL FUMARATE
     Dosage: DAILY DOSE: 5 MILLIGRAM
     Route: 065
  7. LANSOPRAZOLE [Concomitant]
     Active Substance: LANSOPRAZOLE
     Dosage: DAILY DOSE: 15 MILLIGRAM
     Route: 065
  8. LEVOTHYROXINE SODIUM [Concomitant]
     Active Substance: LEVOTHYROXINE SODIUM
     Dosage: DAILY DOSE: 25 MICROGRAM
     Route: 065
  9. LEVOTHYROXINE SODIUM [Concomitant]
     Active Substance: LEVOTHYROXINE SODIUM
     Dosage: DAILY DOSE: 50 MICROGRAM
     Route: 065
  10. RAMIPRIL [Concomitant]
     Active Substance: RAMIPRIL
     Dosage: DAILY DOSE: 2.5 MILLIGRAM
     Route: 065

REACTIONS (4)
  - Aphasia [Recovering/Resolving]
  - Cognitive disorder [Recovering/Resolving]
  - Asthenia [Recovering/Resolving]
  - International normalised ratio increased [Recovering/Resolving]

NARRATIVE: CASE EVENT DATE: 20220103
